FAERS Safety Report 18257724 (Version 1)
Quarter: 2020Q3

REPORT INFORMATION
  Report Type: Spontaneous
  Country: IT (occurrence: IT)
  Receive Date: 20200911
  Receipt Date: 20200911
  Transmission Date: 20201103
  Serious: Yes (Hospitalization)
  Sender: FDA-Public Use
  Company Number: IT-PFIZER INC-2020348975

PATIENT
  Age: 51 Year
  Sex: Female

DRUGS (2)
  1. HALCION [Suspect]
     Active Substance: TRIAZOLAM
     Indication: DRUG ABUSE
     Dosage: 40 DF, SINGLE (250 UG )
     Route: 048
     Dates: start: 20180418, end: 20180418
  2. HALCION [Suspect]
     Active Substance: TRIAZOLAM
     Dosage: 20 DF, SINGLE (125 UG)
     Dates: start: 20180418, end: 20180418

REACTIONS (8)
  - Anal incontinence [Recovering/Resolving]
  - Sopor [Recovering/Resolving]
  - Confusional state [Recovering/Resolving]
  - Sedation [Recovering/Resolving]
  - Disorientation [Recovering/Resolving]
  - Back pain [Recovering/Resolving]
  - Drug abuse [Recovering/Resolving]
  - Bradykinesia [Recovering/Resolving]

NARRATIVE: CASE EVENT DATE: 20180418
